FAERS Safety Report 5085071-4 (Version None)
Quarter: 2006Q3

REPORT INFORMATION
  Report Type: 
  Country: None (occurrence: None)
  Receive Date: 20060816
  Receipt Date: 20060803
  Transmission Date: 20061208
  Serious: Yes (Hospitalization)
  Sender: FDA-Public Use
  Company Number: UK189649

PATIENT
  Age: 34 Year
  Sex: Female
  Weight: 60 kg

DRUGS (1)
  1. NEUPOGEN [Suspect]
     Indication: PERIPHERAL BLOOD STEM CELL APHERESIS
     Dosage: 10 MCG/KG, 2 IN 1 DAYS

REACTIONS (10)
  - ABDOMINAL PAIN UPPER [None]
  - ABDOMINAL RIGIDITY [None]
  - BODY TEMPERATURE DECREASED [None]
  - HAEMOGLOBIN DECREASED [None]
  - HYPOTENSION [None]
  - PERITONEAL HAEMORRHAGE [None]
  - POST PROCEDURAL COMPLICATION [None]
  - SPLENIC RUPTURE [None]
  - SPLENOMEGALY [None]
  - TACHYCARDIA [None]
